FAERS Safety Report 4738190-3 (Version None)
Quarter: 2005Q3

REPORT INFORMATION
  Report Type: 
  Country: None (occurrence: None)
  Receive Date: 20050809
  Receipt Date: 20050419
  Transmission Date: 20060218
  Serious: Yes (Other)
  Sender: FDA-Public Use
  Company Number: US-MERCK-0504USA03751

PATIENT
  Age: 50 Year
  Sex: Female
  Weight: 68 kg

DRUGS (5)
  1. VIOXX [Suspect]
     Indication: MUSCLE SPASMS
     Route: 048
     Dates: start: 20010501, end: 20040905
  2. VIOXX [Suspect]
     Route: 048
     Dates: start: 20010501, end: 20040905
  3. TRIAMTERENE [Concomitant]
     Route: 065
     Dates: start: 19980101
  4. PREMARIN [Concomitant]
     Route: 065
     Dates: start: 19900101
  5. LORCET 10/650 [Concomitant]
     Route: 065

REACTIONS (6)
  - ANGINA PECTORIS [None]
  - BLOOD CHOLESTEROL INCREASED [None]
  - CORONARY ARTERY ATHEROSCLEROSIS [None]
  - GASTROOESOPHAGEAL REFLUX DISEASE [None]
  - MYOCARDIAL INFARCTION [None]
  - OVERDOSE [None]
